FAERS Safety Report 25212280 (Version 1)
Quarter: 2025Q2

REPORT INFORMATION
  Report Type: Spontaneous
  Country: RU (occurrence: RU)
  Receive Date: 20250418
  Receipt Date: 20250418
  Transmission Date: 20250717
  Serious: Yes (Other)
  Sender: TORRENT PHARMA INC.
  Company Number: RU-TORRENT-00000102

PATIENT
  Age: 70 Year
  Sex: Male

DRUGS (1)
  1. NEBIVOLOL [Suspect]
     Active Substance: NEBIVOLOL
     Indication: Pericarditis constrictive
     Dosage: 5 MG/DAY
     Route: 065

REACTIONS (4)
  - Dyspnoea [Unknown]
  - Ascites [Unknown]
  - Condition aggravated [Unknown]
  - Oedema [Unknown]
